FAERS Safety Report 15882102 (Version 3)
Quarter: 2019Q1

REPORT INFORMATION
  Report Type: Spontaneous
  Country: US (occurrence: US)
  Receive Date: 20190128
  Receipt Date: 20190226
  Transmission Date: 20190417
  Serious: Yes (Life-Threatening)
  Sender: FDA-Public Use
  Company Number: US-VIFOR (INTERNATIONAL) INC.-VIT-2019-00666

PATIENT
  Age: 31 Year
  Sex: Female

DRUGS (5)
  1. VENOFER [Suspect]
     Active Substance: IRON SUCROSE
     Indication: IRON DEFICIENCY
     Route: 040
     Dates: start: 20181210
  2. MIRCERA [Suspect]
     Active Substance: METHOXY POLYETHYLENE GLYCOL-EPOETIN BETA
     Indication: NEPHROGENIC ANAEMIA
     Route: 040
     Dates: start: 20181210
  3. MIRCERA [Suspect]
     Active Substance: METHOXY POLYETHYLENE GLYCOL-EPOETIN BETA
     Dosage: 3RD DOSE OF MIRCERA.
     Route: 040
     Dates: start: 20190118, end: 20190118
  4. VENOFER [Suspect]
     Active Substance: IRON SUCROSE
     Dosage: 14TH DOSE OF VENOFER
     Route: 040
     Dates: start: 20190118, end: 20190118
  5. CALCITRIOL. [Concomitant]
     Active Substance: CALCITRIOL
     Route: 048

REACTIONS (4)
  - Vomiting [Recovered/Resolved]
  - Seizure [Recovered/Resolved]
  - Unresponsive to stimuli [Recovered/Resolved]
  - Heart rate increased [Recovered/Resolved]

NARRATIVE: CASE EVENT DATE: 20190118
